FAERS Safety Report 5160377-9 (Version None)
Quarter: 2006Q4

REPORT INFORMATION
  Report Type: 
  Country: None (occurrence: None)
  Receive Date: 20061121
  Receipt Date: 20061114
  Transmission Date: 20070319
  Serious: Yes (Death)
  Sender: FDA-Public Use
  Company Number: 163-21880-06050363

PATIENT
  Age: 86 Year
  Sex: Male

DRUGS (12)
  1. REVLIMID [Suspect]
     Indication: MYELODYSPLASTIC SYNDROME
     Dosage: 10  MG, 1 IN 1 D, ORAL
     Route: 048
     Dates: start: 20060413, end: 20060525
  2. EXJADE [Concomitant]
  3. ARANESP [Concomitant]
  4. NEULASTA [Concomitant]
  5. LISINOPRIL [Concomitant]
  6. GLYBURIDE [Concomitant]
  7. DANAZOL [Concomitant]
  8. ACYCLOVIR [Concomitant]
  9. FOLIC ACID [Concomitant]
  10. CYANOCOBALAMIN [Concomitant]
  11. AMINOCAPROIC ACID [Concomitant]
  12. LEVAQUIN [Concomitant]

REACTIONS (9)
  - ACUTE CORONARY SYNDROME [None]
  - CARDIAC ARREST [None]
  - FATIGUE [None]
  - HERPES SIMPLEX [None]
  - OEDEMA PERIPHERAL [None]
  - PANCYTOPENIA [None]
  - RASH GENERALISED [None]
  - RASH MACULAR [None]
  - RASH PRURITIC [None]
